FAERS Safety Report 4690248-3 (Version None)
Quarter: 2005Q2

REPORT INFORMATION
  Report Type: 
  Country: None (occurrence: None)
  Receive Date: 20050615
  Receipt Date: 20050415
  Transmission Date: 20051028
  Serious: Yes (Hospitalization)
  Sender: FDA-Public Use
  Company Number: BR-ROCHE-402384

PATIENT
  Age: 25 Year
  Sex: Female
  Weight: 55 kg

DRUGS (2)
  1. RIVOTRIL [Suspect]
     Indication: ANXIETY
     Route: 048
     Dates: start: 20050405
  2. FLUOXETINE [Concomitant]
     Route: 048

REACTIONS (11)
  - AGITATION [None]
  - AMNESIA [None]
  - ANXIETY [None]
  - CONDITION AGGRAVATED [None]
  - CONFUSIONAL STATE [None]
  - HEADACHE [None]
  - HYPOGLYCAEMIA [None]
  - JOINT SPRAIN [None]
  - SOMNOLENCE [None]
  - TREMOR [None]
  - VERTIGO [None]
